FAERS Safety Report 20575024 (Version 1)
Quarter: 2022Q1

REPORT INFORMATION
  Report Type: Spontaneous
  Country: CA (occurrence: CA)
  Receive Date: 20220310
  Receipt Date: 20220310
  Transmission Date: 20220423
  Serious: Yes (Hospitalization)
  Sender: FDA-Public Use
  Company Number: CA-TEVA-2022-CA-2013420

PATIENT
  Age: 3 Year
  Sex: Female
  Weight: 19 kg

DRUGS (8)
  1. IBUPROFEN [Suspect]
     Active Substance: IBUPROFEN
     Indication: Pain
     Route: 048
  2. ACETAMINOPHEN [Concomitant]
     Active Substance: ACETAMINOPHEN
  3. AMOXICILLIN [Concomitant]
     Active Substance: AMOXICILLIN
  4. CHOLECALCIFEROL [Concomitant]
     Active Substance: CHOLECALCIFEROL
  5. FOLIC ACID [Concomitant]
     Active Substance: FOLIC ACID
  6. ISONIAZID [Concomitant]
     Active Substance: ISONIAZID
  7. POLYETHYLENE GLYCOL [Concomitant]
     Active Substance: POLYETHYLENE GLYCOL
  8. RIFAMPIN [Concomitant]
     Active Substance: RIFAMPIN

REACTIONS (4)
  - Abdominal pain [Recovered/Resolved]
  - Gastritis [Recovered/Resolved]
  - Pyrexia [Recovered/Resolved]
  - Sickle cell anaemia with crisis [Recovered/Resolved]
